FAERS Safety Report 5429205-8 (Version None)
Quarter: 2007Q3

REPORT INFORMATION
  Report Type: 
  Country: None (occurrence: None)
  Receive Date: 20070827
  Receipt Date: 20070827
  Transmission Date: 20080115
  Serious: Yes (Other)
  Sender: FDA-Public Use
  Company Number: None

PATIENT
  Sex: Male
  Weight: 90.7194 kg

DRUGS (1)
  1. ORAJEL TOOTH DESENSITIZER [Suspect]
     Indication: SENSITIVITY OF TEETH
     Dosage: ONE TREATMENT
     Dates: start: 20070824, end: 20070825

REACTIONS (3)
  - DERMATITIS [None]
  - DRUG HYPERSENSITIVITY [None]
  - URTICARIA [None]
